FAERS Safety Report 14467683 (Version 2)
Quarter: 2018Q4

REPORT INFORMATION
  Report Type: Spontaneous
  Country: US (occurrence: US)
  Receive Date: 20180131
  Receipt Date: 20181112
  Transmission Date: 20190204
  Serious: No
  Sender: FDA-Public Use
  Company Number: US-CELGENEUS-USA-20180110538

PATIENT
  Sex: Female

DRUGS (2)
  1. OTEZLA [Suspect]
     Active Substance: APREMILAST
     Indication: PSORIASIS
     Dosage: STARTER PACK
     Route: 048
     Dates: start: 20180117
  2. OTEZLA [Suspect]
     Active Substance: APREMILAST
     Dosage: 60 MILLIGRAM
     Route: 048
     Dates: start: 20180126

REACTIONS (5)
  - Nausea [Not Recovered/Not Resolved]
  - Diarrhoea [Unknown]
  - Headache [Not Recovered/Not Resolved]
  - Abdominal distension [Unknown]
  - Oesophageal irritation [Unknown]

NARRATIVE: CASE EVENT DATE: 2018
